FAERS Safety Report 4577203-9 (Version None)
Quarter: 2005Q1

REPORT INFORMATION
  Report Type: 
  Country: None (occurrence: None)
  Receive Date: 20050207
  Receipt Date: 20050125
  Transmission Date: 20050727
  Serious: Yes (Life-Threatening, Hospitalization)
  Sender: FDA-Public Use
  Company Number: WAES 0501ESP00042

PATIENT
  Age: 64 Year
  Sex: Male

DRUGS (5)
  1. INDOCIN [Suspect]
     Indication: OSTEOARTHRITIS
     Route: 048
     Dates: start: 20040903, end: 20040903
  2. IBUPROFEN [Suspect]
     Indication: OSTEOARTHRITIS
     Dosage: 600 MG/TID
     Route: 048
     Dates: start: 20040827, end: 20040903
  3. DICLOFENAC [Suspect]
     Indication: OSTEOARTHRITIS
     Route: 048
     Dates: start: 20040801, end: 20040904
  4. DICLOFENAC DIETHYLAMINE [Concomitant]
  5. OMEPRAZOLE [Concomitant]

REACTIONS (6)
  - DRUG INTERACTION [None]
  - GASTRIC VARICES HAEMORRHAGE [None]
  - GASTROINTESTINAL HAEMORRHAGE [None]
  - HAEMATOCRIT DECREASED [None]
  - HAEMOGLOBIN DECREASED [None]
  - PROTHROMBIN TIME PROLONGED [None]
